FAERS Safety Report 7179494-7 (Version None)
Quarter: 2010Q4

REPORT INFORMATION
  Report Type: 
  Country: None (occurrence: None)
  Receive Date: 20101209
  Receipt Date: 20101123
  Transmission Date: 20110411
  Serious: Yes (Hospitalization)
  Sender: FDA-Public Use
  Company Number: GER/GER/09/0008828

PATIENT
  Age: 63 Year
  Sex: Male
  Weight: 80 kg

DRUGS (5)
  1. SIMVASTATIN [Suspect]
     Indication: CAROTID ARTERY STENOSIS
     Dosage: 20 MG, 1 IN 1 D, ORAL
     Route: 048
     Dates: start: 20080519, end: 20081014
  2. INSIDON ^CIBA-GEIGY^(OPIPRAMOL HYDROCHLORIDE) [Suspect]
     Indication: GENERALISED ANXIETY DISORDER
     Dosage: 50 MG, 1 IN 1 D, ORAL
     Route: 048
     Dates: start: 20070901, end: 20081014
  3. JOHANNISKRAUT-KAPSELN (HYPERICUM PERFORATUM EXTRACT) [Suspect]
     Indication: GENERALISED ANXIETY DISORDER
     Dosage: 300 MG, 2 IN 1 D, ORAL
     Route: 048
     Dates: start: 20080911, end: 20081014
  4. ASPIRIN [Suspect]
     Indication: CAROTID ARTERY STENOSIS
     Dosage: 100 MG, 1 IN 1 D, ORAL
     Route: 048
     Dates: start: 20080519, end: 20081010
  5. BISOPROLOL(BISOPROLOL) [Concomitant]

REACTIONS (7)
  - CHOLESTASIS [None]
  - FATIGUE [None]
  - HEPATIC ENZYME INCREASED [None]
  - HEPATIC FIBROSIS [None]
  - HEPATIC STEATOSIS [None]
  - WEIGHT DECREASED [None]
  - YELLOW SKIN [None]
